FAERS Safety Report 8147862-2 (Version None)
Quarter: 2012Q1

REPORT INFORMATION
  Report Type: 
  Country: None (occurrence: None)
  Receive Date: 20120218
  Receipt Date: 20110323
  Transmission Date: 20120608
  Serious: No
  Sender: FDA-Public Use
  Company Number: US-ALLERGAN-1104173US

PATIENT
  Age: 35 Year
  Sex: Female

DRUGS (2)
  1. DYSPORT [Suspect]
     Indication: SKIN WRINKLING
     Dosage: 72.5 UNITS, SINGLE
     Route: 030
     Dates: start: 20101221, end: 20101221
  2. BOTOX COSMETIC [Suspect]
     Indication: SKIN WRINKLING
     Dosage: 10 UNITS, SINGLE
     Route: 030
     Dates: start: 20101221, end: 20101221

REACTIONS (3)
  - RASH [None]
  - SWELLING FACE [None]
  - URTICARIA [None]
